FAERS Safety Report 17649772 (Version 1)
Quarter: 2020Q2

REPORT INFORMATION
  Report Type: Spontaneous
  Country: US (occurrence: US)
  Receive Date: 20200409
  Receipt Date: 20200409
  Transmission Date: 20200713
  Serious: No
  Sender: FDA-Public Use
  Company Number: US-PFIZER INC-2020098163

PATIENT
  Age: 63 Year
  Sex: Male
  Weight: 137.44 kg

DRUGS (4)
  1. TACROLIMUS. [Concomitant]
     Active Substance: TACROLIMUS
     Indication: LIVER TRANSPLANT
     Dosage: 1 MG, 2X/DAY
     Dates: start: 201601
  2. RAPAMUNE [Suspect]
     Active Substance: SIROLIMUS
     Dosage: UNK
     Route: 048
     Dates: end: 20200229
  3. RAPAMUNE [Suspect]
     Active Substance: SIROLIMUS
     Dosage: 2 MG, DAILY (TWO TABLETS BY MOUTH DAILY)
     Route: 048
  4. RAPAMUNE [Suspect]
     Active Substance: SIROLIMUS
     Indication: LIVER TRANSPLANT
     Dosage: 1 MG, 2X/DAY (1MG TWICE A DAY BY MOUTH)
     Route: 048
     Dates: start: 2019

REACTIONS (4)
  - Product use in unapproved indication [Unknown]
  - Infection [Unknown]
  - Off label use [Unknown]
  - Hypoacusis [Unknown]

NARRATIVE: CASE EVENT DATE: 2019
